FAERS Safety Report 9849194 (Version 1)
Quarter: 2013Q4

REPORT INFORMATION
  Report Type: Spontaneous
  Country: US (occurrence: None)
  Receive Date: 20131223
  Receipt Date: 20131223
  Transmission Date: 20140711
  Serious: No
  Sender: FDA-Public Use
  Company Number: CABO-13003693

PATIENT
  Age: 75 Year
  Sex: Male
  Weight: 79.5 kg

DRUGS (10)
  1. COMETRIQ (CABOZANTINIB) CAPSULE [Suspect]
     Indication: RENAL CANCER
     Route: 048
     Dates: start: 20130830
  2. LIPITOR (ATORVASTATIN CALCIUM) [Concomitant]
  3. DIOVAN (VALSARTAN) [Concomitant]
  4. GLIMEPIRIDE (GLIMEPIRIDE) [Concomitant]
  5. GLUMETZA (METFORMIN HYDROCHLORIDE) [Concomitant]
  6. PRILOSEC (OMEPRAZOLE) [Concomitant]
  7. LEVOTHYROXINE (LEVOTHYROXINE SODIUM) [Concomitant]
  8. NIFEDIPINE (NIFEDIPINE) (NIFEDIPINE) [Concomitant]
  9. TRILIPIX (CHOLINE FENOFIBRATE) [Concomitant]
  10. NORCO (HYDROCODONE BITARTRATE, PARACETAMOL) [Concomitant]

REACTIONS (2)
  - Pollakiuria [None]
  - Off label use [None]
